FAERS Safety Report 5377405-8 (Version None)
Quarter: 2007Q3

REPORT INFORMATION
  Report Type: 
  Country: None (occurrence: None)
  Receive Date: 20070703
  Receipt Date: 20070629
  Transmission Date: 20080115
  Serious: Yes (Other)
  Sender: FDA-Public Use
  Company Number: A0661386A

PATIENT
  Age: 80 Year
  Sex: Female

DRUGS (4)
  1. AVANDIA [Suspect]
     Dosage: 4MG ALTERNATE DAYS
     Route: 048
  2. COREG CR [Suspect]
     Indication: HYPERTENSION
     Dosage: 20MG PER DAY
     Route: 048
  3. ATENOLOL [Concomitant]
  4. LACTULOSE [Concomitant]

REACTIONS (7)
  - ARTHRALGIA [None]
  - CONSTIPATION [None]
  - FATIGUE [None]
  - HYPOGLYCAEMIA [None]
  - PAIN [None]
  - RESPIRATORY DISORDER [None]
  - VISION BLURRED [None]
